FAERS Safety Report 11114478 (Version 1)
Quarter: 2015Q2

REPORT INFORMATION
  Report Type: Report from Study
  Country: CA (occurrence: CA)
  Receive Date: 20150515
  Receipt Date: 20150515
  Transmission Date: 20150821
  Serious: Yes (Other)
  Sender: FDA-Public Use
  Company Number: CA-AMGEN-CANSL2015045726

PATIENT
  Age: 74 Year
  Sex: Female

DRUGS (1)
  1. ENBREL [Suspect]
     Active Substance: ETANERCEPT
     Indication: RHEUMATOID ARTHRITIS
     Dosage: 50 MG, UNK
     Route: 065
     Dates: start: 20020707, end: 201411

REACTIONS (6)
  - Therapeutic response decreased [Unknown]
  - Injection site pruritus [Unknown]
  - Sjogren^s syndrome [Unknown]
  - Sleep disorder [Unknown]
  - Injection site mass [Unknown]
  - Abdominal discomfort [Unknown]
